FAERS Safety Report 5349892-2 (Version None)
Quarter: 2007Q2

REPORT INFORMATION
  Report Type: 
  Country: None (occurrence: None)
  Receive Date: 20070514
  Receipt Date: 20060707
  Transmission Date: 20071010
  Serious: Yes (Other)
  Sender: FDA-Public Use
  Company Number: 2006-03537

PATIENT
  Sex: Female

DRUGS (2)
  1. ESTRADIOL [Suspect]
     Indication: HORMONE REPLACEMENT THERAPY
     Dosage: UNK, UNKNOWN, ORAL
     Route: 048
  2. OTHER HORMONE REPLACEMENT THERAPY DRUGS [Suspect]
     Indication: HORMONE REPLACEMENT THERAPY
     Dosage: UNK, UNKNOWN, ORAL
     Route: 048

REACTIONS (1)
  - BREAST CANCER FEMALE [None]
